FAERS Safety Report 6838739-0 (Version None)
Quarter: 2010Q3

REPORT INFORMATION
  Report Type: 
  Country: None (occurrence: None)
  Receive Date: 20100713
  Receipt Date: 20070622
  Transmission Date: 20110219
  Serious: No
  Sender: FDA-Public Use
  Company Number: US-PFIZER INC-2007038301

PATIENT
  Sex: Male
  Weight: 59 kg

DRUGS (5)
  1. CHANTIX [Suspect]
     Indication: SMOKING CESSATION THERAPY
     Dates: start: 20070507
  2. TAMSULOSIN HYDROCHLORIDE [Concomitant]
  3. LIPRAM [Concomitant]
  4. TRAZODONE HYDROCHLORIDE [Concomitant]
  5. VICODIN [Concomitant]
     Indication: BACK PAIN

REACTIONS (3)
  - NAUSEA [None]
  - PYREXIA [None]
  - VOMITING [None]
